FAERS Safety Report 10733502 (Version 2)
Quarter: 2015Q1

REPORT INFORMATION
  Report Type: Spontaneous
  Country: BR (occurrence: BR)
  Receive Date: 20150123
  Receipt Date: 20150225
  Transmission Date: 20150721
  Serious: Yes (Hospitalization, Other)
  Sender: FDA-Public Use
  Company Number: BR-PFIZER INC-2015025711

PATIENT
  Age: 67 Year
  Sex: Male
  Weight: 77 kg

DRUGS (5)
  1. FRONTAL [Suspect]
     Active Substance: ALPRAZOLAM
     Indication: RELAXATION THERAPY
     Dosage: 1 TABLET OF 0.5 MG, AS NEEDED (SOMETIMES DAILY)
     Route: 048
     Dates: start: 201101
  2. CONCOR [Concomitant]
     Active Substance: BISOPROLOL FUMARATE
     Indication: CARDIAC OPERATION
     Dosage: 1 TABLET OF 5 MG, DAILY
     Dates: start: 201101
  3. PANTOZOL [Concomitant]
     Active Substance: PANTOPRAZOLE SODIUM
     Indication: CARDIAC OPERATION
     Dosage: 1 TABLET OF 40 MG, DAILY
     Dates: start: 201101
  4. FRONTAL [Suspect]
     Active Substance: ALPRAZOLAM
     Indication: STRESS
  5. ASPIRINA PREVENT [Concomitant]
     Active Substance: ASPIRIN
     Indication: CARDIAC OPERATION
     Dosage: 1 TABLET, DAILY
     Dates: start: 201101

REACTIONS (2)
  - Transient ischaemic attack [Recovered/Resolved]
  - Carotid artery occlusion [Not Recovered/Not Resolved]

NARRATIVE: CASE EVENT DATE: 2013
